FAERS Safety Report 11422270 (Version 1)
Quarter: 2015Q3

REPORT INFORMATION
  Report Type: Other
  Country: GB (occurrence: GB)
  Receive Date: 20150827
  Receipt Date: 20150827
  Transmission Date: 20151125
  Serious: Yes (Other)
  Sender: FDA-Public Use
  Company Number: GB-SHIRE-GB201510577

PATIENT
  Sex: Female

DRUGS (1)
  1. VPRIV [Suspect]
     Active Substance: VELAGLUCERASE ALFA
     Indication: GAUCHER^S DISEASE
     Dosage: 4000 IU, UNKNOWN
     Route: 041

REACTIONS (4)
  - Lower respiratory tract infection [Unknown]
  - Urinary tract infection [Unknown]
  - Arthralgia [Unknown]
  - Condition aggravated [Unknown]
